FAERS Safety Report 8926034 (Version 1)
Quarter: 2012Q4

REPORT INFORMATION
  Report Type: 
  Country: US (occurrence: US)
  Receive Date: 20121126
  Receipt Date: 20121126
  Transmission Date: 20130627
  Serious: No
  Sender: FDA-Public Use
  Company Number: US-009507513-1211USA006672

PATIENT
  Sex: Female

DRUGS (4)
  1. PROVENTIL [Suspect]
     Indication: ASTHMA
     Dosage: UNK
     Dates: start: 201011
  2. PRILOSEC [Concomitant]
  3. BENICAR [Concomitant]
  4. SINGULAIR [Concomitant]

REACTIONS (2)
  - Cough [Recovering/Resolving]
  - Product quality issue [Unknown]
